FAERS Safety Report 6521821-5 (Version None)
Quarter: 2009Q4

REPORT INFORMATION
  Report Type: 
  Country: None (occurrence: None)
  Receive Date: 20091214
  Receipt Date: 20090811
  Transmission Date: 20100525
  Serious: Yes (Other)
  Sender: FDA-Public Use
  Company Number: 649910

PATIENT
  Age: 39 Year
  Sex: Female

DRUGS (4)
  1. PEGASYS [Suspect]
     Indication: HEPATITIS C
     Dosage: 180 UG
     Dates: start: 20090807
  2. COPEGUS [Suspect]
     Indication: HEPATITIS C
     Dosage: 1200 MG DAILY
     Dates: start: 20090807
  3. PROZAC [Concomitant]
  4. NITROQUICK (NITROGLYCERIN) [Concomitant]

REACTIONS (4)
  - CHILLS [None]
  - DIARRHOEA HAEMORRHAGIC [None]
  - INFLUENZA [None]
  - PAIN [None]
